FAERS Safety Report 17719708 (Version 5)
Quarter: 2023Q1

REPORT INFORMATION
  Report Type: Spontaneous
  Country: US (occurrence: None)
  Receive Date: 20200428
  Receipt Date: 20230215
  Transmission Date: 20230417
  Serious: Yes (Other)
  Sender: FDA-Public Use
  Company Number: 2020SE53588

PATIENT
  Age: 25607 Day
  Sex: Male
  Weight: 74.8 kg

DRUGS (101)
  1. OMEPRAZOLE [Suspect]
     Active Substance: OMEPRAZOLE
     Indication: Gastrooesophageal reflux disease
     Dosage: GENERIC
     Dates: start: 201206, end: 201611
  2. OMEPRAZOLE [Suspect]
     Active Substance: OMEPRAZOLE
     Indication: Gastrooesophageal reflux disease
     Dosage: GENERIC
     Route: 048
     Dates: start: 20140116
  3. OMEPRAZOLE [Suspect]
     Active Substance: OMEPRAZOLE
     Indication: Gastrooesophageal reflux disease
     Dosage: GENRIC CAPSULE
     Route: 065
     Dates: start: 20161208
  4. OMEPRAZOLE [Suspect]
     Active Substance: OMEPRAZOLE
     Indication: Gastrooesophageal reflux disease
     Dosage: GENERIC
     Route: 048
     Dates: start: 20090107
  5. OMEPRAZOLE [Suspect]
     Active Substance: OMEPRAZOLE
     Indication: Gastrooesophageal reflux disease
     Dosage: GENERIC
     Route: 065
     Dates: start: 20161208, end: 20180315
  6. OMEPRAZOLE [Suspect]
     Active Substance: OMEPRAZOLE
     Indication: Gastrooesophageal reflux disease
     Dosage: GENERIC CAPSULE
     Route: 065
     Dates: start: 20120624, end: 20161128
  7. OMEPRAZOLE [Suspect]
     Active Substance: OMEPRAZOLE
     Indication: Gastrooesophageal reflux disease
     Dosage: GENERIC
     Route: 065
     Dates: start: 201805, end: 202007
  8. OMEPRAZOLE [Suspect]
     Active Substance: OMEPRAZOLE
     Indication: Gastrooesophageal reflux disease
     Dosage: GENERIC
     Route: 065
     Dates: start: 20220719
  9. OMEPRAZOLE [Suspect]
     Active Substance: OMEPRAZOLE
     Indication: Gastrooesophageal reflux disease
     Dosage: GENERIC
     Route: 065
     Dates: start: 201805, end: 202007
  10. OMEPRAZOLE [Suspect]
     Active Substance: OMEPRAZOLE
     Indication: Gastrooesophageal reflux disease
     Dosage: GENERIC
     Route: 065
     Dates: start: 20220710
  11. PREVACID [Suspect]
     Active Substance: LANSOPRAZOLE
     Indication: Gastrooesophageal reflux disease
     Route: 065
     Dates: start: 200803, end: 20120223
  12. PREVACID [Suspect]
     Active Substance: LANSOPRAZOLE
     Indication: Gastrooesophageal reflux disease
     Dosage: GENERIC
     Route: 065
     Dates: start: 201110, end: 201206
  13. PREVACID [Suspect]
     Active Substance: LANSOPRAZOLE
     Indication: Gastrooesophageal reflux disease
     Route: 048
     Dates: start: 20110812
  14. PREVACID [Suspect]
     Active Substance: LANSOPRAZOLE
     Indication: Gastrooesophageal reflux disease
     Route: 065
     Dates: start: 20080304, end: 20111024
  15. PREVACID [Suspect]
     Active Substance: LANSOPRAZOLE
     Indication: Gastrooesophageal reflux disease
     Route: 065
     Dates: start: 20111123, end: 20120402
  16. PREVACID [Suspect]
     Active Substance: LANSOPRAZOLE
     Indication: Gastrooesophageal reflux disease
     Dosage: GENERIC
     Route: 065
     Dates: start: 20121123, end: 20121222
  17. PREVACID [Suspect]
     Active Substance: LANSOPRAZOLE
     Indication: Gastrooesophageal reflux disease
     Dosage: GENERIC
     Route: 065
     Dates: start: 20120426, end: 20120623
  18. PANTOPRAZOLE [Suspect]
     Active Substance: PANTOPRAZOLE
     Indication: Gastrooesophageal reflux disease
     Dosage: GENERIC
     Dates: start: 202007, end: 202108
  19. GLIPIZIDE [Concomitant]
     Active Substance: GLIPIZIDE
     Indication: Diabetes mellitus
     Dates: start: 2017
  20. ALOGLIPTIN [Concomitant]
     Active Substance: ALOGLIPTIN
     Indication: Type 2 diabetes mellitus
     Dates: start: 2019
  21. ATORVASTATIN [Concomitant]
     Active Substance: ATORVASTATIN
     Indication: Blood cholesterol increased
     Dates: start: 201311
  22. METOPROLOL [Concomitant]
     Active Substance: METOPROLOL
     Indication: Hypertension
     Dates: start: 2019
  23. METOPROLOL [Concomitant]
     Active Substance: METOPROLOL
     Indication: Hypertension
     Dates: start: 2019, end: 2022
  24. EFFEXOR [Concomitant]
     Active Substance: VENLAFAXINE HYDROCHLORIDE
     Indication: Depression
     Dates: start: 201906
  25. DOCUSATE SODIUM [Concomitant]
     Active Substance: DOCUSATE SODIUM
     Indication: Diarrhoea
     Dates: start: 201603
  26. FLUOXETINE [Concomitant]
     Active Substance: FLUOXETINE HYDROCHLORIDE
     Indication: Depression
     Dates: start: 200910, end: 201702
  27. FLUOXETINE [Concomitant]
     Active Substance: FLUOXETINE HYDROCHLORIDE
     Indication: Depression
     Dates: start: 200910
  28. ARIPIPRAZOLE [Concomitant]
     Active Substance: ARIPIPRAZOLE
     Indication: Bipolar disorder
     Dates: start: 201509, end: 201703
  29. AMLODIPINE [Concomitant]
     Active Substance: AMLODIPINE BESYLATE
     Indication: Hypertension
     Dates: start: 201311, end: 201708
  30. CLONAZEPAM [Concomitant]
     Active Substance: CLONAZEPAM
     Indication: Anxiety
     Dates: start: 200812, end: 201703
  31. WARFARIN [Concomitant]
     Active Substance: WARFARIN
     Indication: Anticoagulant therapy
     Dates: start: 201202, end: 201710
  32. TYLENOL [Concomitant]
     Active Substance: ACETAMINOPHEN
     Indication: Pain
     Dates: start: 2019
  33. CLONIDINE [Concomitant]
     Active Substance: CLONIDINE
  34. JALYN [Concomitant]
     Active Substance: DUTASTERIDE\TAMSULOSIN HYDROCHLORIDE
  35. VITAMIN E [Concomitant]
     Active Substance: .ALPHA.-TOCOPHEROL
  36. BENICAR [Concomitant]
     Active Substance: OLMESARTAN MEDOXOMIL
  37. HYDROCORTISONE [Concomitant]
     Active Substance: HYDROCORTISONE
  38. HERBALS\SAW PALMETTO [Concomitant]
     Active Substance: HERBALS\SAW PALMETTO
  39. ANDROGEL [Concomitant]
     Active Substance: TESTOSTERONE
  40. PROMETHAZINE [Concomitant]
     Active Substance: PROMETHAZINE HYDROCHLORIDE
  41. GLYCOLIC ACID [Concomitant]
     Active Substance: GLYCOLIC ACID
  42. NITROSTAT [Concomitant]
     Active Substance: NITROGLYCERIN
  43. FLUDROCORTISONE [Concomitant]
     Active Substance: FLUDROCORTISONE
  44. LUNESTA [Concomitant]
     Active Substance: ESZOPICLONE
  45. ASPIRIN [Concomitant]
     Active Substance: ASPIRIN
  46. OMEGA 3 [Concomitant]
     Active Substance: CAPSAICIN
  47. ALIGN [Concomitant]
     Active Substance: BIFIDOBACTERIUM LONGUM SUBSP. INFANTIS
  48. OXYCONTIN [Concomitant]
     Active Substance: OXYCODONE HYDROCHLORIDE
  49. NIACIN [Concomitant]
     Active Substance: NIACIN
  50. BENADRYL [Concomitant]
     Active Substance: DIPHENHYDRAMINE HYDROCHLORIDE
  51. LIDODERM [Concomitant]
     Active Substance: LIDOCAINE
  52. BYSTOLIC [Concomitant]
     Active Substance: NEBIVOLOL HYDROCHLORIDE
  53. SIMVASTATIN [Concomitant]
     Active Substance: SIMVASTATIN
  54. ASCORBIC ACID [Concomitant]
     Active Substance: ASCORBIC ACID
  55. IBUPROFEN [Concomitant]
     Active Substance: IBUPROFEN
  56. COREG [Concomitant]
     Active Substance: CARVEDILOL
  57. ZIPRASIDONE [Concomitant]
     Active Substance: ZIPRASIDONE
  58. MECLIZINE [Concomitant]
     Active Substance: MECLIZINE HYDROCHLORIDE
  59. TORSEMIDE [Concomitant]
     Active Substance: TORSEMIDE
  60. TEMAZEPAM [Concomitant]
     Active Substance: TEMAZEPAM
  61. TAMSULOSIN [Concomitant]
     Active Substance: TAMSULOSIN
  62. GLYCOLAX [Concomitant]
     Active Substance: POLYETHYLENE GLYCOL 3350
  63. POLYETHYLENE GLYCOL [Concomitant]
     Active Substance: POLYETHYLENE GLYCOL
  64. OZEMPIC [Concomitant]
     Active Substance: SEMAGLUTIDE
     Indication: Type 2 diabetes mellitus
     Dates: start: 2021
  65. ZOVIRAX [Concomitant]
     Active Substance: ACYCLOVIR
  66. BACLOFEN [Concomitant]
     Active Substance: BACLOFEN
  67. CHLORTHALIDONE [Concomitant]
     Active Substance: CHLORTHALIDONE
  68. FINASTERIDE [Concomitant]
     Active Substance: FINASTERIDE
  69. HYOSCYAMINE [Concomitant]
     Active Substance: HYOSCYAMINE
  70. NALOXONE [Concomitant]
     Active Substance: NALOXONE
  71. PREDNISONE [Concomitant]
     Active Substance: PREDNISONE
  72. TETRACAINE [Concomitant]
     Active Substance: TETRACAINE
  73. FLUORESCEIN [Concomitant]
     Active Substance: FLUORESCEIN
  74. VISTARIL [Concomitant]
     Active Substance: HYDROXYZINE PAMOATE
     Indication: Blood cholesterol increased
     Dates: start: 201311
  75. BIOTENE NOS [Concomitant]
     Active Substance: CETYLPYRIDINIUM CHLORIDE OR SODIUM FLUORIDE OR SODIUM MONOFLUOROPHOSPHATE OR GLUCOSE OXIDASE\LACTOFE
  76. OPANA [Concomitant]
     Active Substance: OXYMORPHONE HYDROCHLORIDE
  77. ONDANSETRON [Concomitant]
     Active Substance: ONDANSETRON
  78. MORPHINE [Concomitant]
     Active Substance: MORPHINE
  79. HYDRALAZINE [Concomitant]
     Active Substance: HYDRALAZINE HYDROCHLORIDE
  80. FLUVIRIN NOS [Concomitant]
     Active Substance: INFLUENZA VIRUS VACCINE
  81. GUANFACINE [Concomitant]
     Active Substance: GUANFACINE
  82. DUTASTERIDE [Concomitant]
     Active Substance: DUTASTERIDE
  83. METRONIDAZOLE [Concomitant]
     Active Substance: METRONIDAZOLE
  84. GABAPENTIN [Concomitant]
     Active Substance: GABAPENTIN
     Indication: Pain
     Dates: start: 2015, end: 2015
  85. GABAPENTIN [Concomitant]
     Active Substance: GABAPENTIN
     Indication: Pain
     Dates: start: 2022
  86. DIETARY SUPPLEMENT\HERBALS\MILK THISTLE [Concomitant]
     Active Substance: DIETARY SUPPLEMENT\HERBALS\MILK THISTLE
     Indication: Supplementation therapy
  87. COLLAGEN [Concomitant]
     Active Substance: COLLAGEN
     Indication: Supplementation therapy
  88. RANITIDINE [Concomitant]
     Active Substance: RANITIDINE
     Dates: start: 2018, end: 2020
  89. FAMOTIDINE [Concomitant]
     Active Substance: FAMOTIDINE
     Dates: start: 2020
  90. CINNAMON [Concomitant]
     Active Substance: CINNAMON
     Indication: Supplementation therapy
  91. VITAMIN B12 [Concomitant]
     Active Substance: CYANOCOBALAMIN
     Indication: Supplementation therapy
  92. VITAMINS [Concomitant]
     Active Substance: VITAMINS
     Indication: Supplementation therapy
  93. BIOTIN [Concomitant]
     Active Substance: BIOTIN
     Indication: Supplementation therapy
  94. CETIRIZINE [Concomitant]
     Active Substance: CETIRIZINE HYDROCHLORIDE
     Dates: start: 2020
  95. CLINDAMYCIN [Concomitant]
     Active Substance: CLINDAMYCIN
     Dates: start: 2020
  96. FLUTICASONE [Concomitant]
     Active Substance: FLUTICASONE
     Dates: start: 2020
  97. HYDROCODONE [Concomitant]
     Active Substance: HYDROCODONE
     Dates: start: 2020
  98. PENICILLIN [Concomitant]
     Active Substance: PENICILLIN
  99. BUTALBITAL-ACETAMINOPHEN-CAFF [Concomitant]
  100. LIMBREL [Concomitant]
     Active Substance: DIETARY SUPPLEMENT\FLAVOCOXID
  101. ROXICODONE [Concomitant]
     Active Substance: OXYCODONE HYDROCHLORIDE

REACTIONS (8)
  - Acute kidney injury [Not Recovered/Not Resolved]
  - Chronic kidney disease [Not Recovered/Not Resolved]
  - Nephrogenic anaemia [Unknown]
  - Chronic kidney disease-mineral and bone disorder [Unknown]
  - Renal failure [Not Recovered/Not Resolved]
  - Renal impairment [Unknown]
  - Tubulointerstitial nephritis [Unknown]
  - Gastrooesophageal reflux disease [Not Recovered/Not Resolved]

NARRATIVE: CASE EVENT DATE: 20111028
